FAERS Safety Report 15976531 (Version 9)
Quarter: 2019Q3

REPORT INFORMATION
  Report Type: Spontaneous
  Country: US (occurrence: US)
  Receive Date: 20190218
  Receipt Date: 20190906
  Transmission Date: 20191004
  Serious: Yes (Congenital Anomaly, Other)
  Sender: FDA-Public Use
  Company Number: PHEH2019US007309

PATIENT
  Sex: Female

DRUGS (1)
  1. ZOFRAN [Suspect]
     Active Substance: ONDANSETRON HYDROCHLORIDE
     Indication: FOETAL EXPOSURE DURING PREGNANCY
     Dosage: MOTHER^S DOSE: 4 MG, UNK
     Route: 064

REACTIONS (62)
  - Ventricular septal defect [Unknown]
  - Pulmonary oedema neonatal [Unknown]
  - Infantile vomiting [Unknown]
  - Rash [Unknown]
  - Tachypnoea [Unknown]
  - Dry skin [Unknown]
  - Nausea [Unknown]
  - Left-to-right cardiac shunt [Unknown]
  - Cardiac failure congestive [Unknown]
  - Cardiac failure [Unknown]
  - Rhinorrhoea [Unknown]
  - Wheezing [Unknown]
  - Ear infection [Unknown]
  - Arthralgia [Unknown]
  - Decreased appetite [Unknown]
  - Urticaria [Unknown]
  - Laevocardia [Unknown]
  - Acute respiratory failure [Unknown]
  - Pneumonia [Unknown]
  - Pleural effusion [Unknown]
  - Pulmonary valve incompetence [Unknown]
  - Fatigue [Unknown]
  - Selective eating disorder [Unknown]
  - Abdominal pain [Unknown]
  - Neonatal respiratory distress [Unknown]
  - Injury [Unknown]
  - Upper respiratory tract infection [Unknown]
  - Conjunctivitis [Unknown]
  - Pyrexia [Unknown]
  - Left ventricular dysfunction [Unknown]
  - Constipation [Unknown]
  - Atrial septal defect [Unknown]
  - Bicuspid aortic valve [Unknown]
  - Respiratory syncytial virus infection [Unknown]
  - Cardiomegaly [Unknown]
  - Teething [Unknown]
  - Stomatitis [Unknown]
  - Otitis media [Unknown]
  - Diarrhoea [Unknown]
  - Oropharyngeal pain [Unknown]
  - Joint swelling [Unknown]
  - Asthenia [Unknown]
  - Pharyngitis [Unknown]
  - Right ventricular hypertrophy [Unknown]
  - Heart disease congenital [Unknown]
  - Gastroenteritis [Unknown]
  - Nasopharyngitis [Unknown]
  - Foreign body [Unknown]
  - Coarctation of the aorta [Unknown]
  - Pulmonary congestion [Unknown]
  - Aortic valve incompetence [Unknown]
  - Foetal exposure during pregnancy [Unknown]
  - Gastrooesophageal reflux disease [Unknown]
  - Dyspepsia [Unknown]
  - Migraine [Unknown]
  - Abdominal discomfort [Unknown]
  - Bronchiolitis [Unknown]
  - Circulatory collapse [Unknown]
  - Cough [Unknown]
  - Dyspnoea [Unknown]
  - Headache [Unknown]
  - Influenza [Unknown]
